FAERS Safety Report 13338545 (Version 1)
Quarter: 2017Q1

REPORT INFORMATION
  Report Type: Other
  Country: None (occurrence: US)
  Receive Date: 20170315
  Receipt Date: 20170315
  Transmission Date: 20170428
  Serious: Yes (Other)
  Sender: FDA-Public Use
  Company Number: US-GUTHY-RENKER LLC-1064270

PATIENT
  Age: 55 Year
  Sex: Female

DRUGS (2)
  1. SYNTHROID/ THYROID  MEDICATION [Concomitant]
  2. IT COSMETICS BYE BYE FOUNDATION WITH SPF 50+ [Suspect]
     Active Substance: TITANIUM DIOXIDE\ZINC OXIDE
     Indication: PROPHYLAXIS AGAINST SOLAR RADIATION
     Route: 061
     Dates: start: 20170307

REACTIONS (3)
  - Erythema [None]
  - Rash [None]
  - Swelling face [Recovering/Resolving]

NARRATIVE: CASE EVENT DATE: 20170307
